FAERS Safety Report 7833393-3 (Version None)
Quarter: 2011Q4

REPORT INFORMATION
  Report Type: 
  Country: None (occurrence: None)
  Receive Date: 20111024
  Receipt Date: 20111017
  Transmission Date: 20120403
  Serious: Yes (Hospitalization)
  Sender: FDA-Public Use
  Company Number: US-PFIZER INC-2011206109

PATIENT
  Sex: Female
  Weight: 79.4 kg

DRUGS (3)
  1. PREMARIN [Suspect]
     Indication: VULVOVAGINAL DRYNESS
     Dosage: UNK, 2X/WEEK
     Route: 067
     Dates: start: 20110601
  2. PREMARIN [Suspect]
     Dosage: UNK, 2X/WEEK
     Route: 067
     Dates: start: 20110801
  3. CITALOPRAM [Concomitant]
     Indication: AFFECTIVE DISORDER
     Dosage: 10 MG, DAILY

REACTIONS (11)
  - SPEECH DISORDER [None]
  - HEADACHE [None]
  - VOMITING [None]
  - TRANSIENT ISCHAEMIC ATTACK [None]
  - DEMENTIA [None]
  - CHEST PAIN [None]
  - SENSATION OF HEAVINESS [None]
  - DYSPNOEA [None]
  - NAUSEA [None]
  - HYPERTENSION [None]
  - DIZZINESS [None]
